FAERS Safety Report 10968537 (Version 1)
Quarter: 2015Q1

REPORT INFORMATION
  Report Type: Spontaneous
  Country: US (occurrence: US)
  Receive Date: 20150330
  Receipt Date: 20150330
  Transmission Date: 20150721
  Serious: No
  Sender: FDA-Public Use
  Company Number: US-009507513-1503USA013595

PATIENT
  Age: 81 Year
  Sex: Male

DRUGS (4)
  1. COZAAR [Suspect]
     Active Substance: LOSARTAN POTASSIUM
     Indication: HYPERTENSION
     Route: 048
  2. ATENOLOL. [Suspect]
     Active Substance: ATENOLOL
     Indication: HYPERTENSION
  3. LASIX [Suspect]
     Active Substance: FUROSEMIDE
     Indication: HYPERTENSION
  4. POTASSIUM (UNSPECIFIED) [Suspect]
     Active Substance: POTASSIUM
     Indication: HYPERTENSION

REACTIONS (3)
  - Drug intolerance [Unknown]
  - Hypertension [Unknown]
  - Drug ineffective [Unknown]
